FAERS Safety Report 4982715-X (Version None)
Quarter: 2006Q2

REPORT INFORMATION
  Report Type: 
  Country: None (occurrence: None)
  Receive Date: 20060425
  Receipt Date: 20051103
  Transmission Date: 20061013
  Serious: Yes (Hospitalization)
  Sender: FDA-Public Use
  Company Number: US-MERCK-0511USA00823

PATIENT
  Age: 74 Year
  Sex: Male
  Weight: 68 kg

DRUGS (2)
  1. VIOXX [Suspect]
     Indication: PAIN
     Route: 048
     Dates: start: 19990101, end: 20040501
  2. CELEBREX [Concomitant]
     Route: 065

REACTIONS (18)
  - ANGINA UNSTABLE [None]
  - ANOREXIA [None]
  - BUNDLE BRANCH BLOCK LEFT [None]
  - CARDIAC FAILURE CONGESTIVE [None]
  - COAGULOPATHY [None]
  - CORONARY ARTERY DISEASE [None]
  - HAEMATOMA [None]
  - HEPATIC LESION [None]
  - INSOMNIA [None]
  - INTERVERTEBRAL DISC DEGENERATION [None]
  - INTERVERTEBRAL DISC PROTRUSION [None]
  - ISCHAEMIC CARDIOMYOPATHY [None]
  - MYOCARDIAL INFARCTION [None]
  - POST PROCEDURAL HAEMORRHAGE [None]
  - POST PROCEDURAL NAUSEA [None]
  - PROCEDURAL HYPOTENSION [None]
  - PULMONARY OEDEMA [None]
  - RADICULOPATHY [None]
